FAERS Safety Report 18526734 (Version 2)
Quarter: 2021Q1

REPORT INFORMATION
  Report Type: Spontaneous
  Country: DE (occurrence: DE)
  Receive Date: 20201120
  Receipt Date: 20210111
  Transmission Date: 20210419
  Serious: No
  Sender: FDA-Public Use
  Company Number: DE-ROCHE-2717137

PATIENT
  Age: 41 Year
  Sex: Female
  Weight: 69 kg

DRUGS (2)
  1. OCREVUS [Suspect]
     Active Substance: OCRELIZUMAB
     Route: 042
     Dates: start: 20200901
  2. OCREVUS [Suspect]
     Active Substance: OCRELIZUMAB
     Indication: MULTIPLE SCLEROSIS
     Route: 042
     Dates: start: 201901

REACTIONS (5)
  - COVID-19 [Unknown]
  - Headache [Unknown]
  - Hypoaesthesia [Unknown]
  - Chest discomfort [Unknown]
  - Pain in extremity [Unknown]
